FAERS Safety Report 5084696-X (Version None)
Quarter: 2006Q3

REPORT INFORMATION
  Report Type: 
  Country: None (occurrence: None)
  Receive Date: 20060818
  Receipt Date: 20060818
  Transmission Date: 20061208
  Serious: Yes (Other)
  Sender: FDA-Public Use
  Company Number: None

PATIENT
  Age: 66 Year
  Sex: Male
  Weight: 107.9561 kg

DRUGS (2)
  1. FOSAMAX [Suspect]
     Indication: OSTEOPENIA
     Dosage: 70 MG Q WEEK PO
     Route: 048
     Dates: start: 20020814, end: 20060815
  2. FOSAMAX [Suspect]
     Indication: STEROID THERAPY
     Dosage: 70 MG Q WEEK PO
     Route: 048
     Dates: start: 20020814, end: 20060815

REACTIONS (1)
  - OSTEONECROSIS [None]
